FAERS Safety Report 16741500 (Version 1)
Quarter: 2019Q3

REPORT INFORMATION
  Report Type: Spontaneous
  Country: JP (occurrence: JP)
  Receive Date: 20190826
  Receipt Date: 20190826
  Transmission Date: 20191005
  Serious: Yes (Hospitalization, Other)
  Sender: FDA-Public Use
  Company Number: JP-PFIZER INC-2019360416

PATIENT
  Age: 5 Decade
  Sex: Male

DRUGS (1)
  1. EFFEXOR [Suspect]
     Active Substance: VENLAFAXINE HYDROCHLORIDE
     Dosage: UNK
     Route: 048

REACTIONS (3)
  - Blood creatine phosphokinase increased [Unknown]
  - Hepatic function abnormal [Unknown]
  - Diabetes mellitus [Unknown]
